FAERS Safety Report 13358805 (Version 2)
Quarter: 2017Q2

REPORT INFORMATION
  Report Type: Spontaneous
  Country: AU (occurrence: AU)
  Receive Date: 20170322
  Receipt Date: 20170515
  Transmission Date: 20170830
  Serious: Yes (Other)
  Sender: FDA-Public Use
  Company Number: AU-PFIZER INC-2017115980

PATIENT
  Age: 18 Year
  Sex: Female

DRUGS (1)
  1. ADVIL [Suspect]
     Active Substance: IBUPROFEN

REACTIONS (4)
  - Chromaturia [Unknown]
  - Gastrointestinal disorder [Unknown]
  - Overdose [Unknown]
  - Altered state of consciousness [Unknown]
